FAERS Safety Report 6269061-1 (Version None)
Quarter: 2009Q3

REPORT INFORMATION
  Report Type: 
  Country: None (occurrence: None)
  Receive Date: 20090715
  Receipt Date: 20090703
  Transmission Date: 20100115
  Serious: Yes (Hospitalization)
  Sender: FDA-Public Use
  Company Number: FR-PFIZER INC-2009235835

PATIENT
  Age: 82 Year

DRUGS (6)
  1. ALDACTONE [Suspect]
     Indication: CARDIAC FAILURE
     Dosage: 150 MG, 1X/DAY
     Route: 048
     Dates: end: 20070213
  2. OMIX [Concomitant]
     Indication: BENIGN PROSTATIC HYPERPLASIA
  3. FUROSEMIDE [Concomitant]
     Indication: CARDIAC FAILURE
     Dosage: 40 MG, 2X/DAY
  4. BUFLOMEDIL HYDROCHLORIDE [Concomitant]
     Indication: PERIPHERAL ARTERIAL OCCLUSIVE DISEASE
     Dosage: 300 MG, 1X/DAY
     Route: 048
  5. MODOPAR [Concomitant]
     Indication: PARKINSON'S DISEASE
     Dosage: 125 MG, 1X/DAY
     Route: 048
  6. SERC [Concomitant]
     Indication: DIZZINESS
     Dosage: 8 MG, 1X/DAY
     Route: 048

REACTIONS (3)
  - EOSINOPHILIA [None]
  - PEMPHIGOID [None]
  - RASH ERYTHEMATOUS [None]
